FAERS Safety Report 18931668 (Version 1)
Quarter: 2021Q1

REPORT INFORMATION
  Report Type: Spontaneous
  Country: US (occurrence: US)
  Receive Date: 20210223
  Receipt Date: 20210223
  Transmission Date: 20210420
  Serious: No
  Sender: FDA-Public Use
  Company Number: US-IGSA-BIG0010877

PATIENT
  Age: 63 Year
  Sex: Female
  Weight: 59 kg

DRUGS (18)
  1. LECITHIN [Concomitant]
     Active Substance: LECITHIN
  2. VITAMIN C [Concomitant]
     Active Substance: ASCORBIC ACID
  3. VITAMIN D3 [Concomitant]
     Active Substance: CHOLECALCIFEROL
  4. LEVALBUTEROL                       /01419301/ [Concomitant]
     Active Substance: LEVALBUTEROL
  5. PROLASTIN?C LIQUID [Suspect]
     Active Substance: .ALPHA.1-PROTEINASE INHIBITOR HUMAN
     Indication: ALPHA-1 ANTITRYPSIN DEFICIENCY
     Dosage: 3540 MILLIGRAM, Q.WK.
     Route: 042
     Dates: start: 20200724
  6. ALPRAZOLAM. [Concomitant]
     Active Substance: ALPRAZOLAM
  7. VITAMIN E                          /00110501/ [Concomitant]
     Active Substance: TOCOPHEROL
  8. ASMANEX HFA [Concomitant]
     Active Substance: MOMETASONE FUROATE
  9. LYSINE [Concomitant]
     Active Substance: LYSINE
  10. LEVAQUIN [Concomitant]
     Active Substance: LEVOFLOXACIN
  11. QUERCETIN [Concomitant]
     Active Substance: QUERCETIN
  12. STIOLTO RESPIMAT [Concomitant]
     Active Substance: OLODATEROL HYDROCHLORIDE\TIOTROPIUM BROMIDE MONOHYDRATE
  13. BUDESONIDE. [Concomitant]
     Active Substance: BUDESONIDE
  14. IPRATROPIUM/ALBUTEROL [Concomitant]
     Active Substance: ALBUTEROL\IPRATROPIUM
  15. PREDNISONE. [Concomitant]
     Active Substance: PREDNISONE
  16. PROLASTIN?C LIQUID [Suspect]
     Active Substance: .ALPHA.1-PROTEINASE INHIBITOR HUMAN
     Dosage: UNK MILLIGRAM, Q.WK.
     Route: 042
     Dates: start: 20200620
  17. MILK THISTLE                       /01131701/ [Concomitant]
     Active Substance: DIETARY SUPPLEMENT\HERBALS\MILK THISTLE
  18. NAC                                /00082801/ [Concomitant]
     Active Substance: ACETYLCYSTEINE

REACTIONS (4)
  - Urticaria [Not Recovered/Not Resolved]
  - Lip swelling [Recovered/Resolved]
  - Rash [Recovering/Resolving]
  - Pruritus [Recovering/Resolving]

NARRATIVE: CASE EVENT DATE: 20200625
